FAERS Safety Report 10867367 (Version 1)
Quarter: 2015Q1

REPORT INFORMATION
  Report Type: Spontaneous
  Country: US (occurrence: US)
  Receive Date: 20150225
  Receipt Date: 20150225
  Transmission Date: 20150721
  Serious: Yes (Death, Hospitalization)
  Sender: FDA-Public Use
  Company Number: US-SA-2015SA022598

PATIENT
  Age: 61 Year
  Sex: Female

DRUGS (3)
  1. HUMALOG [Concomitant]
     Active Substance: INSULIN LISPRO
     Dosage: DOSE:30 UNIT(S)
  2. SOLOSTAR [Concomitant]
     Active Substance: DEVICE
     Dates: end: 201411
  3. LANTUS SOLOSTAR [Suspect]
     Active Substance: INSULIN GLARGINE
     Indication: TYPE 2 DIABETES MELLITUS
     Dosage: DOSE- 70U QAM AND 80U QHS
     Route: 065
     Dates: end: 201411

REACTIONS (4)
  - Hypoglycaemia [Unknown]
  - Drug administration error [Unknown]
  - Chronic kidney disease [Fatal]
  - Pulmonary oedema [Fatal]
